FAERS Safety Report 15772820 (Version 1)
Quarter: 2018Q4

REPORT INFORMATION
  Report Type: Spontaneous
  Country: AR (occurrence: AR)
  Receive Date: 20181228
  Receipt Date: 20181228
  Transmission Date: 20190205
  Serious: No
  Sender: FDA-Public Use
  Company Number: AR-ABBVIE-18K-007-2604939-00

PATIENT

DRUGS (1)
  1. HUMIRA [Suspect]
     Active Substance: ADALIMUMAB
     Indication: COLITIS ULCERATIVE
     Route: 058

REACTIONS (7)
  - Carbohydrate antigen 19-9 increased [Unknown]
  - Mouth injury [Unknown]
  - Skin lesion [Unknown]
  - Crohn^s disease [Unknown]
  - Cytomegalovirus infection [Unknown]
  - Leukocytosis [Unknown]
  - Diarrhoea [Unknown]
